FAERS Safety Report 10420149 (Version 1)
Quarter: 2014Q3

REPORT INFORMATION
  Report Type: Report from Study
  Country: US (occurrence: None)
  Receive Date: 20140804
  Receipt Date: 20140804
  Transmission Date: 20150326
  Serious: Yes (Hospitalization)
  Sender: FDA-Public Use
  Company Number: 2012US006328

PATIENT
  Age: 47 Year
  Sex: Male
  Weight: 61.7 kg

DRUGS (8)
  1. GLASSIA [Suspect]
     Active Substance: .ALPHA.1-PROTEINASE INHIBITOR HUMAN
     Indication: CHRONIC OBSTRUCTIVE PULMONARY DISEASE
     Route: 042
     Dates: start: 201207
  2. THEOPHYLLINE (THEOPHYLLINE) [Concomitant]
     Active Substance: THEOPHYLLINE
  3. CELEXA?/00582602/ (CITALOPRAM HYDROBROMIDE) [Concomitant]
  4. ADVAIR DISKUS [Concomitant]
     Active Substance: FLUTICASONE PROPIONATE\SALMETEROL XINAFOATE
  5. FENTANYL. [Concomitant]
     Active Substance: FENTANYL
  6. ABILIFY [Concomitant]
     Active Substance: ARIPIPRAZOLE
  7. SPIRIVA [Concomitant]
     Active Substance: TIOTROPIUM BROMIDE MONOHYDRATE
  8. KEPPRA [Suspect]
     Active Substance: LEVETIRACETAM
     Indication: CONVULSION
     Route: 048
     Dates: start: 201209, end: 20121017

REACTIONS (4)
  - Pneumothorax [None]
  - Cardio-respiratory arrest [None]
  - Pericardial effusion [None]
  - Convulsion [None]

NARRATIVE: CASE EVENT DATE: 201212
